FAERS Safety Report 19155062 (Version 1)
Quarter: 2021Q2

REPORT INFORMATION
  Report Type: Spontaneous
  Country: FR (occurrence: FR)
  Receive Date: 20210419
  Receipt Date: 20210419
  Transmission Date: 20210717
  Serious: Yes (Other)
  Sender: FDA-Public Use
  Company Number: FR-MYLANLABS-2021M1022757

PATIENT
  Age: 2 Year
  Sex: Male
  Weight: 12.2 kg

DRUGS (3)
  1. VANCOMICINA MYLAN [Suspect]
     Active Substance: VANCOMYCIN
     Indication: FEBRILE BONE MARROW APLASIA
     Dosage: 720 MILLIGRAM, TOTAL
     Route: 042
     Dates: start: 20201121, end: 20201121
  2. AMBISOME [Concomitant]
     Active Substance: AMPHOTERICIN B
     Indication: PROPHYLAXIS
     Dosage: 3 DOSAGE FORM, QW
     Route: 042
     Dates: start: 20201116
  3. TAZOCILLINE [Concomitant]
     Active Substance: PIPERACILLIN SODIUM\TAZOBACTAM SODIUM
     Indication: FEBRILE BONE MARROW APLASIA
     Dosage: INCONNUE
     Route: 042
     Dates: start: 20201120

REACTIONS (3)
  - Accidental overdose [Recovered/Resolved]
  - Incorrect dose administered [Recovered/Resolved]
  - Red man syndrome [Recovered/Resolved]

NARRATIVE: CASE EVENT DATE: 20201121
